FAERS Safety Report 7894113-X (Version None)
Quarter: 2011Q4

REPORT INFORMATION
  Report Type: 
  Country: None (occurrence: None)
  Receive Date: 20111104
  Receipt Date: 20111031
  Transmission Date: 20120403
  Serious: Yes (Death, Other)
  Sender: FDA-Public Use
  Company Number: US-ELI_LILLY_AND_COMPANY-US201110003005

PATIENT
  Age: 49 Year
  Sex: Female
  Weight: 60.499 kg

DRUGS (4)
  1. PEMETREXED [Suspect]
     Indication: NON-SMALL CELL LUNG CANCER METASTATIC
     Dosage: 500 MG/M2, EVERY 21 DAYS
     Route: 042
     Dates: start: 20110517, end: 20110913
  2. SUNITINIB MALATE [Suspect]
     Indication: NON-SMALL CELL LUNG CANCER METASTATIC
     Dosage: 37.5 MG, QD
     Route: 048
     Dates: start: 20110517, end: 20110901
  3. MEGACE [Concomitant]
  4. FOLIC ACID [Concomitant]

REACTIONS (1)
  - EMBOLISM [None]
